FAERS Safety Report 12986714 (Version 2)
Quarter: 2016Q4

REPORT INFORMATION
  Report Type: Spontaneous
  Country: BR (occurrence: BR)
  Receive Date: 20161130
  Receipt Date: 20161227
  Transmission Date: 20170207
  Serious: Yes (Hospitalization, Other)
  Sender: FDA-Public Use
  Company Number: BR-PFIZER INC-2016444454

PATIENT
  Age: 76 Year
  Sex: Female

DRUGS (3)
  1. SUTENT [Suspect]
     Active Substance: SUNITINIB MALATE
     Indication: METASTATIC RENAL CELL CARCINOMA
     Dosage: 1 DF, CYCLIC (1 TABLET DAILY, FOR 4 WEEKS AND STOPPED FOR 2 WEEKS)
     Dates: start: 20160822, end: 20161030
  2. CARVEDILOL. [Concomitant]
     Active Substance: CARVEDILOL
     Indication: CARDIAC DISORDER
  3. LOSARTAN. [Concomitant]
     Active Substance: LOSARTAN
     Indication: BLOOD PRESSURE MEASUREMENT

REACTIONS (30)
  - Memory impairment [Recovered/Resolved]
  - Platelet count decreased [Not Recovered/Not Resolved]
  - Oral pain [Recovered/Resolved]
  - Crying [Recovering/Resolving]
  - Mouth injury [Recovering/Resolving]
  - Acne [Recovered/Resolved]
  - Tongue discolouration [Recovering/Resolving]
  - Ageusia [Recovering/Resolving]
  - Cough [Recovered/Resolved]
  - Nausea [Not Recovered/Not Resolved]
  - Pneumonia [Recovered/Resolved]
  - Haemorrhage [Recovered/Resolved]
  - Mouth haemorrhage [Recovered/Resolved]
  - Gingival pain [Recovered/Resolved]
  - Poisoning [Recovering/Resolving]
  - Lacrimal disorder [Recovering/Resolving]
  - Blood sodium decreased [Unknown]
  - Eye irritation [Recovering/Resolving]
  - Aphthous ulcer [Recovered/Resolved]
  - Asthenia [Recovering/Resolving]
  - Dizziness [Recovering/Resolving]
  - Blood pressure increased [Not Recovered/Not Resolved]
  - Eating disorder [Recovered/Resolved]
  - Eye swelling [Recovering/Resolving]
  - Abasia [Recovering/Resolving]
  - Immunodeficiency [Not Recovered/Not Resolved]
  - Blood potassium decreased [Unknown]
  - Epistaxis [Recovered/Resolved]
  - Mastication disorder [Recovered/Resolved]
  - Dysgeusia [Recovering/Resolving]

NARRATIVE: CASE EVENT DATE: 2016
